FAERS Safety Report 6348315-4 (Version None)
Quarter: 2009Q3

REPORT INFORMATION
  Report Type: 
  Country: None (occurrence: None)
  Receive Date: 20090908
  Receipt Date: 20090827
  Transmission Date: 20100115
  Serious: Yes (Hospitalization)
  Sender: FDA-Public Use
  Company Number: 2006-144661-NL

PATIENT
  Age: 25 Year
  Sex: Female

DRUGS (1)
  1. NUVARING [Suspect]
     Indication: CONTRACEPTION
     Dosage: ; VAG
     Route: 067
     Dates: start: 20060101, end: 20060525

REACTIONS (9)
  - AMENORRHOEA [None]
  - CEREBRAL THROMBOSIS [None]
  - CEREBROVASCULAR ACCIDENT [None]
  - HEADACHE [None]
  - INFLAMMATION [None]
  - MULTIPLE ALLERGIES [None]
  - PHARYNGITIS [None]
  - TYMPANIC MEMBRANE DISORDER [None]
  - VISION BLURRED [None]
